FAERS Safety Report 6069230-X (Version None)
Quarter: 2009Q1

REPORT INFORMATION
  Report Type: 
  Country: None (occurrence: None)
  Receive Date: 20090206
  Receipt Date: 20090127
  Transmission Date: 20090719
  Serious: Yes (Other)
  Sender: FDA-Public Use
  Company Number: PHHY2009BR03088

PATIENT
  Sex: Female

DRUGS (7)
  1. DIOVAN [Suspect]
     Indication: HYPERTENSION
     Dosage: ONE 80 MG TABLET
     Route: 048
     Dates: start: 20070101
  2. ELIDEL [Suspect]
     Indication: VITILIGO
     Dosage: TWICE/DAY, ONCE IN THE MORNING AND AT NIGHT
     Route: 061
     Dates: start: 20030101
  3. RISEDRONATE SODIUM [Concomitant]
     Dosage: 35 MG, ONCE/WEEK
  4. CALTRATE + D                       /00944201/ [Concomitant]
     Indication: OSTEOPOROSIS
     Dosage: 1 TABLET/DAY
     Route: 048
  5. HOMEOPATHIC PREPARATIONS [Concomitant]
  6. MANIDIPINE HYDROCHLORIDE [Concomitant]
     Dosage: 1 TABLET/DAY
     Route: 048
  7. NATRILIX - SLOW RELEASE [Concomitant]
     Indication: HYPERTENSION
     Dosage: UNK
     Route: 048

REACTIONS (7)
  - ACCIDENT [None]
  - BONE LESION [None]
  - FALL [None]
  - HIP FRACTURE [None]
  - MOVEMENT DISORDER [None]
  - SENSORY DISTURBANCE [None]
  - VITILIGO [None]
